FAERS Safety Report 25682345 (Version 1)
Quarter: 2025Q3

REPORT INFORMATION
  Report Type: Report from Study
  Country: US (occurrence: US)
  Receive Date: 20250814
  Receipt Date: 20250814
  Transmission Date: 20251020
  Serious: Yes (Death, Other)
  Sender: GILEAD
  Company Number: US-GILEAD-2025-0724226

PATIENT
  Age: 55 Year
  Sex: Female

DRUGS (1)
  1. SACITUZUMAB GOVITECAN-HZIY [Suspect]
     Active Substance: SACITUZUMAB GOVITECAN-HZIY
     Indication: Breast cancer female
     Route: 065

REACTIONS (1)
  - Death [Fatal]

NARRATIVE: CASE EVENT DATE: 20250714
